FAERS Safety Report 16160704 (Version 1)
Quarter: 2019Q2

REPORT INFORMATION
  Report Type: Spontaneous
  Country: FR (occurrence: FR)
  Receive Date: 20190405
  Receipt Date: 20190405
  Transmission Date: 20190711
  Serious: Yes (Other)
  Sender: FDA-Public Use
  Company Number: FR-TEVA-2019-FR-1035567

PATIENT
  Age: 47 Year
  Sex: Female
  Weight: 66 kg

DRUGS (3)
  1. ESTRADIOL. [Suspect]
     Active Substance: ESTRADIOL
     Route: 048
  2. ANDROCUR 50 MG, COMPRIME [Suspect]
     Active Substance: CYPROTERONE ACETATE
     Indication: HIRSUTISM
     Route: 048
     Dates: start: 19930315, end: 20181020
  3. ESTRADIOL. [Suspect]
     Active Substance: ESTRADIOL
     Dosage: 1 DOSAGE FORMS DAILY;
     Route: 003

REACTIONS (1)
  - Meningioma [Not Recovered/Not Resolved]

NARRATIVE: CASE EVENT DATE: 20190130
